FAERS Safety Report 11165131 (Version 2)
Quarter: 2015Q2

REPORT INFORMATION
  Report Type: Report from Study
  Country: ID (occurrence: ID)
  Receive Date: 20150604
  Receipt Date: 20150619
  Transmission Date: 20150821
  Serious: Yes (Death, Hospitalization)
  Sender: FDA-Public Use
  Company Number: ID-ASTELLAS-2015US018895

PATIENT
  Age: 73 Year
  Sex: Female

DRUGS (1)
  1. ERLOTINIB [Suspect]
     Active Substance: ERLOTINIB
     Indication: PRODUCT USED FOR UNKNOWN INDICATION
     Route: 065
     Dates: start: 20150423, end: 20150522

REACTIONS (6)
  - Asthenia [Fatal]
  - Loss of consciousness [Fatal]
  - Decreased appetite [Unknown]
  - Dyspnoea [Unknown]
  - Dehydration [Unknown]
  - Rhinitis [Unknown]
